FAERS Safety Report 25530624 (Version 1)
Quarter: 2025Q3

REPORT INFORMATION
  Report Type: Spontaneous
  Country: US (occurrence: None)
  Receive Date: 20250708
  Receipt Date: 20250708
  Transmission Date: 20251020
  Serious: Yes (Life-Threatening, Other)
  Sender: FDA-CTU
  Company Number: None

PATIENT
  Age: 68 Year
  Sex: Male
  Weight: 98.8 kg

DRUGS (1)
  1. PRIVIGEN [Suspect]
     Active Substance: HUMAN IMMUNOGLOBULIN G

REACTIONS (4)
  - Myasthenia gravis [None]
  - Pneumonia [None]
  - Dyspnoea [None]
  - Respiratory arrest [None]

NARRATIVE: CASE EVENT DATE: 20250701
